FAERS Safety Report 4770913-X (Version None)
Quarter: 2005Q3

REPORT INFORMATION
  Report Type: 
  Country: None (occurrence: None)
  Receive Date: 20050914
  Receipt Date: 20050829
  Transmission Date: 20060218
  Serious: Yes (Death)
  Sender: FDA-Public Use
  Company Number: JP_050807454

PATIENT
  Age: 72 Year
  Sex: Male
  Weight: 56 kg

DRUGS (4)
  1. GEMZAR [Suspect]
     Indication: PANCREATIC CARCINOMA
     Dosage: 1100 MG OTHER
     Route: 042
     Dates: start: 20050713, end: 20050727
  2. KYTRIL [Concomitant]
  3. DECADRON [Concomitant]
  4. FAMOTIDINE [Concomitant]

REACTIONS (8)
  - ASPERGILLOSIS [None]
  - CANDIDIASIS [None]
  - INTERSTITIAL LUNG DISEASE [None]
  - PNEUMONIA KLEBSIELLA [None]
  - PNEUMONITIS [None]
  - PSEUDOMONAS INFECTION [None]
  - RESPIRATORY FAILURE [None]
  - SERRATIA INFECTION [None]
